FAERS Safety Report 15023701 (Version 1)
Quarter: 2018Q2

REPORT INFORMATION
  Report Type: Spontaneous
  Country: BE (occurrence: BE)
  Receive Date: 20180618
  Receipt Date: 20180618
  Transmission Date: 20180711
  Serious: Yes (Hospitalization)
  Sender: FDA-Public Use
  Company Number: BE-MYLANLABS-2018M1041182

PATIENT
  Age: 15 Year
  Sex: Male
  Weight: 44 kg

DRUGS (1)
  1. ISOTRETINOIN. [Suspect]
     Active Substance: ISOTRETINOIN
     Indication: ACNE
     Dosage: 20 MG, QD
     Route: 048

REACTIONS (10)
  - Juvenile idiopathic arthritis [Recovered/Resolved]
  - Pancytopenia [Recovered/Resolved]
  - Anti-neutrophil cytoplasmic antibody positive vasculitis [Recovered/Resolved]
  - Haematuria [Recovered/Resolved]
  - Gait inability [Recovered/Resolved]
  - Myositis [Recovered/Resolved]
  - Proteinuria [Recovered/Resolved]
  - Haematemesis [Recovered/Resolved]
  - Pyuria [Recovered/Resolved]
  - Tendonitis [Recovered/Resolved]
